FAERS Safety Report 19615778 (Version 1)
Quarter: 2021Q3

REPORT INFORMATION
  Report Type: Spontaneous
  Country: US (occurrence: US)
  Receive Date: 20210727
  Receipt Date: 20210727
  Transmission Date: 20211014
  Serious: No
  Sender: FDA-Public Use
  Company Number: US-BRECKENRIDGE PHARMACEUTICAL, INC.-2114336

PATIENT
  Age: 27 Year
  Sex: Male
  Weight: 79.55 kg

DRUGS (6)
  1. ASENAPINE SUBLINGUAL TABLETS [Suspect]
     Active Substance: ASENAPINE
     Indication: BIPOLAR DISORDER
     Route: 060
  2. LITHIUM. [Concomitant]
     Active Substance: LITHIUM
  3. LEVOTHYROXINE. [Concomitant]
     Active Substance: LEVOTHYROXINE
  4. METFORMIN [Concomitant]
     Active Substance: METFORMIN HYDROCHLORIDE
  5. CLONAZEPAM. [Concomitant]
     Active Substance: CLONAZEPAM
  6. BENZTROPINE. [Concomitant]
     Active Substance: BENZTROPINE

REACTIONS (3)
  - Glossodynia [Recovered/Resolved]
  - Product solubility abnormal [Unknown]
  - Hypoaesthesia oral [Recovered/Resolved]
